FAERS Safety Report 12871999 (Version 1)
Quarter: 2016Q4

REPORT INFORMATION
  Report Type: Spontaneous
  Country: US (occurrence: US)
  Receive Date: 20161021
  Receipt Date: 20161021
  Transmission Date: 20170207
  Serious: Yes (Hospitalization, Other)
  Sender: FDA-Public Use
  Company Number: US-CIPLA-2016US19404

PATIENT

DRUGS (4)
  1. CISPLATIN. [Concomitant]
     Active Substance: CISPLATIN
     Indication: SQUAMOUS CELL CARCINOMA OF LUNG
     Dosage: 60 MG/M2, DAY 1, REPEATED EVERY 3  WEEKS FOR 4 CYCLES
     Dates: start: 20121212, end: 20130220
  2. GEMCITABINE [Suspect]
     Active Substance: GEMCITABINE\GEMCITABINE HYDROCHLORIDE
     Indication: SQUAMOUS CELL CARCINOMA OF LUNG
     Dosage: 1000 MG/M2, ON DAY 1 AND DAY 8, REPEATED EVERY 3 WEEKS FOR 4 CYCLES
     Dates: start: 20121212, end: 20130220
  3. CARBOPLATIN. [Concomitant]
     Active Substance: CARBOPLATIN
     Indication: SQUAMOUS CELL CARCINOMA OF LUNG
     Dosage: AUC 2, FOR 2 WEEKS
  4. PACLITAXEL. [Concomitant]
     Active Substance: PACLITAXEL
     Indication: SQUAMOUS CELL CARCINOMA OF LUNG
     Dosage: 50 MG/M2. FOR 2 WEEKS

REACTIONS (6)
  - Swelling [Recovering/Resolving]
  - Musculoskeletal pain [Recovering/Resolving]
  - Recall phenomenon [Recovered/Resolved]
  - Dysphagia [Recovering/Resolving]
  - Leukocytosis [Recovered/Resolved]
  - Odynophagia [Unknown]
